FAERS Safety Report 20363006 (Version 1)
Quarter: 2022Q1

REPORT INFORMATION
  Report Type: Spontaneous
  Country: US (occurrence: US)
  Receive Date: 20220121
  Receipt Date: 20220121
  Transmission Date: 20220423
  Serious: No
  Sender: FDA-Public Use
  Company Number: US-LUPIN PHARMACEUTICALS INC.-2022-00397

PATIENT
  Sex: Male

DRUGS (1)
  1. ALBUTEROL SULFATE [Suspect]
     Active Substance: ALBUTEROL SULFATE
     Indication: Product used for unknown indication
     Dosage: UNK UNK, PRN (2 PUFFS EVERY 4 HOURS AS NEEDED)

REACTIONS (4)
  - Product substitution issue [Unknown]
  - Device malfunction [Unknown]
  - Device failure [Unknown]
  - No adverse event [Unknown]
